FAERS Safety Report 20420768 (Version 3)
Quarter: 2022Q2

REPORT INFORMATION
  Report Type: Report from Study
  Country: US (occurrence: US)
  Receive Date: 20220203
  Receipt Date: 20220426
  Transmission Date: 20220721
  Serious: Yes (Hospitalization)
  Sender: FDA-Public Use
  Company Number: US-ABBVIE-22K-163-4259560-00

PATIENT
  Age: 60 Year
  Sex: Male
  Weight: 77.634 kg

DRUGS (11)
  1. DUOPA [Suspect]
     Active Substance: CARBIDOPA\LEVODOPA
     Indication: Parkinson^s disease
     Route: 050
     Dates: start: 20210527, end: 202201
  2. DUOPA [Suspect]
     Active Substance: CARBIDOPA\LEVODOPA
  3. DEPAKOTE [Concomitant]
     Active Substance: DIVALPROEX SODIUM
     Indication: Depression
  4. LEXAPRO [Concomitant]
     Active Substance: ESCITALOPRAM OXALATE
     Indication: Anxiety
  5. CEFADROXIL [Concomitant]
     Active Substance: CEFADROXIL
     Indication: Product used for unknown indication
  6. COVID-19 VACCINE [Concomitant]
     Indication: COVID-19 immunisation
     Route: 030
     Dates: start: 20210426, end: 20210426
  7. COVID-19 VACCINE [Concomitant]
     Route: 030
     Dates: start: 20210907, end: 20210907
  8. SINAMET [Concomitant]
     Indication: Parkinson^s disease
     Dosage: 25/100
     Route: 048
  9. ESCITALOPRAM [Concomitant]
     Active Substance: ESCITALOPRAM OXALATE
     Indication: Product used for unknown indication
     Route: 048
  10. VALPROIC ACID [Concomitant]
     Active Substance: VALPROIC ACID
     Indication: Product used for unknown indication
     Route: 050
  11. RIFAMPIN [Concomitant]
     Active Substance: RIFAMPIN
     Indication: Product used for unknown indication
     Route: 048

REACTIONS (7)
  - Suicide attempt [Recovered/Resolved]
  - Depression [Not Recovered/Not Resolved]
  - Frustration tolerance decreased [Not Recovered/Not Resolved]
  - SARS-CoV-2 test positive [Unknown]
  - Injury [Unknown]
  - Device dislocation [Unknown]
  - Device occlusion [Unknown]

NARRATIVE: CASE EVENT DATE: 20220127
